FAERS Safety Report 6716946-5 (Version None)
Quarter: 2010Q2

REPORT INFORMATION
  Report Type: 
  Country: None (occurrence: None)
  Receive Date: 20100506
  Receipt Date: 20100506
  Transmission Date: 20101027
  Serious: Yes (Hospitalization)
  Sender: FDA-Public Use
  Company Number: None

PATIENT
  Sex: Male
  Weight: 94.8018 kg

DRUGS (1)
  1. SUTENT [Suspect]
     Indication: BLADDER CANCER
     Dosage: 50 MG BY MOUTH DAILY
     Route: 048
     Dates: start: 20070913, end: 20071010

REACTIONS (8)
  - CHROMATURIA [None]
  - HAEMATOCRIT DECREASED [None]
  - HAEMOGLOBIN DECREASED [None]
  - HAEMORRHAGE [None]
  - INSOMNIA [None]
  - MEDICAL DEVICE PAIN [None]
  - PAIN [None]
  - RENAL HAEMATOMA [None]
